FAERS Safety Report 7757002-7 (Version None)
Quarter: 2011Q3

REPORT INFORMATION
  Report Type: 
  Country: None (occurrence: None)
  Receive Date: 20110916
  Receipt Date: 20110916
  Transmission Date: 20111222
  Serious: Yes (Death, Life-Threatening, Hospitalization, Disabling, Congenital Anomaly, Other)
  Sender: FDA-Public Use
  Company Number: None

PATIENT
  Age: 22 Year
  Sex: Female
  Weight: 88.45 kg

DRUGS (1)
  1. IMPLANON [Suspect]

REACTIONS (7)
  - EMOTIONAL DISORDER [None]
  - WEIGHT INCREASED [None]
  - MOOD SWINGS [None]
  - MENSTRUATION IRREGULAR [None]
  - ALOPECIA [None]
  - DEPRESSION [None]
  - ANXIETY [None]
